FAERS Safety Report 8507480-0 (Version None)
Quarter: 2012Q3

REPORT INFORMATION
  Report Type: 
  Country: None (occurrence: None)
  Receive Date: 20120712
  Receipt Date: 20120709
  Transmission Date: 20120928
  Serious: Yes (Other)
  Sender: FDA-Public Use
  Company Number: US-AMGEN-USASP2011015761

PATIENT
  Age: 62 Year
  Sex: Female
  Weight: 54.422 kg

DRUGS (2)
  1. ENBREL [Suspect]
     Indication: PSORIATIC ARTHROPATHY
     Dosage: UNK
     Dates: start: 20050101, end: 20110101
  2. ENBREL [Suspect]
     Dosage: UNK UNK, QWK
     Route: 058
     Dates: start: 20060101, end: 20110201

REACTIONS (2)
  - DEMENTIA [None]
  - VARIANT CREUTZFELDT-JAKOB DISEASE [None]
